FAERS Safety Report 15334608 (Version 2)
Quarter: 2018Q3

REPORT INFORMATION
  Report Type: Spontaneous
  Country: US (occurrence: US)
  Receive Date: 20180830
  Receipt Date: 20180925
  Transmission Date: 20181010
  Serious: No
  Sender: FDA-Public Use
  Company Number: US-LEXICON PHARMACEUTICALS, INC-18-1606-01005

PATIENT
  Age: 71 Year
  Sex: Male
  Weight: 74.91 kg

DRUGS (14)
  1. VITAMIN C [Concomitant]
     Active Substance: ASCORBIC ACID
  2. FINASTERIDE. [Concomitant]
     Active Substance: FINASTERIDE
  3. CALCIUM [Concomitant]
     Active Substance: CALCIUM
  4. TELOTRISTAT ETHYL [Suspect]
     Active Substance: TELOTRISTAT ETHYL
     Indication: CARCINOID SYNDROME
     Route: 048
     Dates: start: 20180719, end: 2018
  5. LANREOTIDE [Concomitant]
     Active Substance: LANREOTIDE
  6. AFINITOR [Concomitant]
     Active Substance: EVEROLIMUS
  7. TAMSULOSIN [Concomitant]
     Active Substance: TAMSULOSIN
  8. HYDROCHLOROTHIAZIDE. [Concomitant]
     Active Substance: HYDROCHLOROTHIAZIDE
  9. IRON [Concomitant]
     Active Substance: IRON
  10. IMODIUM [Concomitant]
     Active Substance: LOPERAMIDE HYDROCHLORIDE
  11. ALPRAZOLAM. [Concomitant]
     Active Substance: ALPRAZOLAM
  12. LUTATHERA [Concomitant]
     Active Substance: LUTETIUM OXODOTREOTIDE LU-177
  13. LISINOPRIL. [Concomitant]
     Active Substance: LISINOPRIL
  14. WARFARIN [Concomitant]
     Active Substance: WARFARIN

REACTIONS (4)
  - Constipation [Not Recovered/Not Resolved]
  - Flatulence [Not Recovered/Not Resolved]
  - Abdominal pain upper [Not Recovered/Not Resolved]
  - Abdominal pain lower [Not Recovered/Not Resolved]

NARRATIVE: CASE EVENT DATE: 20180811
